FAERS Safety Report 8530923-3 (Version None)
Quarter: 2012Q3

REPORT INFORMATION
  Report Type: 
  Country: None (occurrence: None)
  Receive Date: 20120723
  Receipt Date: 20120712
  Transmission Date: 20120928
  Serious: Yes (Other)
  Sender: FDA-Public Use
  Company Number: US-ASTRAZENECA-2012SE48328

PATIENT
  Sex: Male

DRUGS (2)
  1. PLAVIX [Concomitant]
  2. NEXIUM [Suspect]
     Indication: GASTRITIS
     Route: 048
     Dates: start: 20070101

REACTIONS (4)
  - OFF LABEL USE [None]
  - DIZZINESS [None]
  - CORONARY ARTERY OCCLUSION [None]
  - MYOCARDIAL INFARCTION [None]
